FAERS Safety Report 4940467-3 (Version None)
Quarter: 2006Q1

REPORT INFORMATION
  Report Type: 
  Country: None (occurrence: None)
  Receive Date: 20060131
  Receipt Date: 20051026
  Transmission Date: 20060701
  Serious: No
  Sender: FDA-Public Use
  Company Number: 200518630US

PATIENT
  Age: 58 Year
  Sex: Female
  Weight: 71 kg

DRUGS (6)
  1. KETEK [Suspect]
     Indication: PHARYNGITIS STREPTOCOCCAL
     Dosage: QD PO
     Route: 048
     Dates: start: 20051021, end: 20051025
  2. PHENYTOIN SODIUM [Suspect]
     Indication: EPILEPSY
     Dosage: 200 MG BID PO
     Route: 048
  3. ETHOSUXIMIDE (ZARONTIN) [Concomitant]
  4. PHENOBARBITAL TAB [Concomitant]
  5. VALIUM [Concomitant]
  6. THIORIDAZINE HYDROCHLORIDE(MELLARIL) [Concomitant]

REACTIONS (1)
  - DIZZINESS [None]
